FAERS Safety Report 9126808 (Version 1)
Quarter: 2013Q1

REPORT INFORMATION
  Report Type: Report from Study
  Country: US (occurrence: US)
  Receive Date: 20130228
  Receipt Date: 20130228
  Transmission Date: 20140127
  Serious: Yes (Hospitalization)
  Sender: FDA-Public Use
  Company Number: US-UCBSA-000262

PATIENT
  Age: 52 Year
  Sex: Male
  Weight: 90.9 kg

DRUGS (9)
  1. LACOSAMIDE [Suspect]
     Indication: EPILEPSY
     Route: 048
     Dates: start: 20080620
  2. FOLIC ACID [Concomitant]
     Indication: PROPHYLAXIS
     Route: 048
     Dates: start: 2006
  3. VITAMIN B12 [Concomitant]
     Indication: PROPHYLAXIS
     Route: 048
     Dates: start: 2006
  4. FERROUS SULFATE [Concomitant]
     Indication: ANAEMIA
     Route: 048
     Dates: start: 2006
  5. DAILY MULTIVITAMIN [Concomitant]
     Indication: PROPHYLAXIS
     Dosage: 1 TABLET EVERY DAY
     Route: 048
     Dates: start: 2006
  6. LORAZEPAM [Concomitant]
     Indication: CONVULSION
     Route: 048
     Dates: start: 20080606
  7. TOPAMAX [Concomitant]
     Indication: EPILEPSY
     Route: 048
     Dates: start: 20080815
  8. TRILEPTAL [Concomitant]
     Indication: EPILEPSY
     Route: 048
     Dates: start: 20081010
  9. TRILEPTAL [Concomitant]
     Indication: EPILEPSY
     Route: 048
     Dates: start: 20081010

REACTIONS (1)
  - Convulsion [Recovered/Resolved]
